FAERS Safety Report 11798131 (Version 3)
Quarter: 2015Q4

REPORT INFORMATION
  Report Type: Report from Study
  Country: GB (occurrence: GB)
  Receive Date: 20151203
  Receipt Date: 20151223
  Transmission Date: 20160305
  Serious: Yes (Hospitalization)
  Sender: FDA-Public Use
  Company Number: GB-AMGEN-GBRCT2015127004

PATIENT
  Weight: 58.3 kg

DRUGS (2)
  1. ROMIDEPSIN [Concomitant]
     Active Substance: ROMIDEPSIN
     Indication: T-CELL LYMPHOMA
     Dosage: 16 MG, PER CHEMO REGIM
     Route: 042
     Dates: start: 20151124
  2. CARFILZOMIB [Suspect]
     Active Substance: CARFILZOMIB
     Indication: T-CELL LYMPHOMA
     Dosage: 39 MG, PER CHEMO REGIM
     Route: 042
     Dates: start: 20151124

REACTIONS (2)
  - Device related infection [Not Recovered/Not Resolved]
  - Pyrexia [Not Recovered/Not Resolved]

NARRATIVE: CASE EVENT DATE: 20151125
